FAERS Safety Report 9965212 (Version 3)
Quarter: 2014Q2

REPORT INFORMATION
  Report Type: Spontaneous
  Country: JP (occurrence: JP)
  Receive Date: 20140305
  Receipt Date: 20140616
  Transmission Date: 20141212
  Serious: Yes (Hospitalization, Other)
  Sender: FDA-Public Use
  Company Number: PHHY2014JP014327

PATIENT
  Age: 64 Year
  Sex: Female

DRUGS (6)
  1. EQUA [Suspect]
     Dosage: UNK UKN, UNK
     Route: 048
  2. DIOVAN [Suspect]
     Indication: HYPERTENSION
     Dosage: 80 MG, DAILY
     Route: 048
     Dates: start: 2013, end: 20130913
  3. CRESTOR [Suspect]
     Dosage: UNK UKN, UNK
     Route: 048
  4. ZETIA [Suspect]
     Dosage: UNK UKN, UNK
     Route: 048
  5. NORVASC [Concomitant]
     Dosage: 5 MG, UNK
     Route: 048
     Dates: start: 2013, end: 20130913
  6. METHOTREXATE [Concomitant]
     Dosage: UNK UKN, UNK

REACTIONS (7)
  - Rhabdomyolysis [Recovering/Resolving]
  - C-reactive protein increased [Recovering/Resolving]
  - Gamma-glutamyltransferase increased [Recovered/Resolved]
  - Drug hypersensitivity [Recovered/Resolved]
  - Pyrexia [Recovered/Resolved]
  - Lymphocyte stimulation test positive [Unknown]
  - Red blood cell sedimentation rate increased [Unknown]
